FAERS Safety Report 6634233-0 (Version None)
Quarter: 2010Q1

REPORT INFORMATION
  Report Type: 
  Country: None (occurrence: None)
  Receive Date: 20100315
  Receipt Date: 20100303
  Transmission Date: 20100710
  Serious: Yes (Hospitalization, Other)
  Sender: FDA-Public Use
  Company Number: PHEH2008US11787

PATIENT
  Sex: Female
  Weight: 64 kg

DRUGS (25)
  1. EXJADE [Suspect]
     Indication: MYELOPROLIFERATIVE DISORDER
     Dosage: 1500 MG DAILY
     Route: 048
     Dates: start: 20080822, end: 20080904
  2. EXJADE [Suspect]
     Indication: IRON OVERLOAD
  3. ANTIMICROBIALS [Concomitant]
  4. DIURETICS [Concomitant]
  5. IMMUNOSUPPRESSANTS [Concomitant]
  6. CALCIUM [Concomitant]
  7. ATIVAN [Concomitant]
     Dosage: 0.5 MG EVERY 6 HOURS PRN
  8. COMPRAZINE [Concomitant]
     Dosage: 10 MG, PRN
  9. CALAN [Concomitant]
     Dosage: 240 MG DAILY
  10. VITAMIN D [Concomitant]
     Dosage: 500 MG DAILY
  11. FOLIC ACID [Concomitant]
     Dosage: 1 MG DAILY
  12. NEXIUM [Concomitant]
     Dosage: 40 MG DAILY
  13. INTRON A [Concomitant]
     Dosage: 3 MILLION UNITS DAILY
  14. FERROUS SULFATE TAB [Concomitant]
     Dosage: 325 MG, BID
  15. M.V.I. [Concomitant]
     Dosage: DAILY
  16. VANCENASE [Concomitant]
     Dosage: PRN
  17. PLAVIX [Concomitant]
     Dosage: 75 MG DAILY
  18. POTASSIUM CHLORIDE [Concomitant]
     Dosage: 1 DF, UNK
  19. MODURETIC 5-50 [Concomitant]
     Dosage: DAILY
  20. VITAMIN C [Concomitant]
     Dosage: 500 MG, BID
  21. ARANESP [Concomitant]
     Dosage: 3000 MCG EVERY OTHER WEEK
     Route: 058
  22. CLARITIN [Concomitant]
     Dosage: PRN
  23. TRIAMCINOLONE [Concomitant]
  24. EUCERIN CREME [Concomitant]
     Dosage: BID
     Route: 061
  25. ANTIBIOTICS [Concomitant]

REACTIONS (16)
  - ATRIAL FIBRILLATION [None]
  - CLOSTRIDIUM DIFFICILE COLITIS [None]
  - CONCOMITANT DISEASE PROGRESSION [None]
  - DEHYDRATION [None]
  - HAEMODIALYSIS [None]
  - LETHARGY [None]
  - MICTURITION URGENCY [None]
  - NAUSEA [None]
  - NON-CARDIAC CHEST PAIN [None]
  - OEDEMA [None]
  - PNEUMONIA [None]
  - PYREXIA [None]
  - RENAL DISORDER [None]
  - RENAL FAILURE ACUTE [None]
  - URINARY TRACT INFECTION [None]
  - URINE OUTPUT DECREASED [None]
